FAERS Safety Report 23123861 (Version 1)
Quarter: 2023Q4

REPORT INFORMATION
  Report Type: Spontaneous
  Country: US (occurrence: US)
  Receive Date: 20231030
  Receipt Date: 20231030
  Transmission Date: 20240110
  Serious: Yes (Other)
  Sender: FDA-Public Use
  Company Number: US-COOPERSURGICAL, INC.-US-2023CPS003388

PATIENT
  Sex: Female
  Weight: 69.388 kg

DRUGS (3)
  1. PARAGARD T 380A [Suspect]
     Active Substance: COPPER
     Indication: Product used for unknown indication
     Dosage: UNK
     Route: 015
     Dates: start: 201608
  2. AMLODIPINE [Concomitant]
     Active Substance: AMLODIPINE BESYLATE
     Indication: Product used for unknown indication
     Dosage: UNK, UNK
     Route: 065
  3. CYMBALTA [Concomitant]
     Active Substance: DULOXETINE HYDROCHLORIDE
     Indication: Product used for unknown indication
     Dosage: UNK, UNK
     Route: 065

REACTIONS (24)
  - Uterine leiomyoma [Unknown]
  - Hypotension [Unknown]
  - Device toxicity [Unknown]
  - Embedded device [Recovered/Resolved]
  - Device breakage [Not Recovered/Not Resolved]
  - Foreign body in reproductive tract [Not Recovered/Not Resolved]
  - Complication of device removal [Not Recovered/Not Resolved]
  - Device material issue [Unknown]
  - Dysarthria [Unknown]
  - Gait disturbance [Unknown]
  - Sciatica [Unknown]
  - Pain in extremity [Not Recovered/Not Resolved]
  - Urinary incontinence [Unknown]
  - Procedural pain [Recovered/Resolved]
  - Angiopathy [Recovering/Resolving]
  - Neurological symptom [Recovering/Resolving]
  - Osteonecrosis [Unknown]
  - Depressed level of consciousness [Unknown]
  - Electrolyte imbalance [Unknown]
  - Groin pain [Not Recovered/Not Resolved]
  - Sensation of foreign body [Unknown]
  - Abdominal pain [Unknown]
  - Back pain [Unknown]
  - Device expulsion [Unknown]

NARRATIVE: CASE EVENT DATE: 20210101
